FAERS Safety Report 21095389 (Version 1)
Quarter: 2022Q3

REPORT INFORMATION
  Report Type: Spontaneous
  Country: US (occurrence: US)
  Receive Date: 20220718
  Receipt Date: 20220718
  Transmission Date: 20221026
  Serious: No
  Sender: FDA-Public Use
  Company Number: US-PFIZER INC-PV202200023448

PATIENT
  Sex: Male

DRUGS (1)
  1. VIAGRA [Suspect]
     Active Substance: SILDENAFIL CITRATE
     Indication: Erectile dysfunction
     Dosage: 100 MG
     Route: 048
     Dates: start: 202204, end: 202206

REACTIONS (2)
  - Pruritus genital [Not Recovered/Not Resolved]
  - Penile odour [Not Recovered/Not Resolved]

NARRATIVE: CASE EVENT DATE: 20220401
